FAERS Safety Report 15957589 (Version 3)
Quarter: 2019Q1

REPORT INFORMATION
  Report Type: Spontaneous
  Country: US (occurrence: US)
  Receive Date: 20190213
  Receipt Date: 20190328
  Transmission Date: 20190417
  Serious: No
  Sender: FDA-Public Use
  Company Number: US-SA-2019SA037733

PATIENT
  Age: 61 Year
  Sex: Female

DRUGS (2)
  1. DIGOXIN. [Concomitant]
     Active Substance: DIGOXIN
  2. PRALUENT [Suspect]
     Active Substance: ALIROCUMAB
     Indication: BLOOD CHOLESTEROL
     Dosage: 75 MG, QOW
     Route: 058
     Dates: start: 201801

REACTIONS (5)
  - Device use issue [Unknown]
  - Extra dose administered [Unknown]
  - Eye disorder [Unknown]
  - Injection site haematoma [Unknown]
  - Accidental exposure to product [Unknown]

NARRATIVE: CASE EVENT DATE: 20190206
